FAERS Safety Report 4728722-3 (Version None)
Quarter: 2005Q3

REPORT INFORMATION
  Report Type: 
  Country: None (occurrence: None)
  Receive Date: 20050729
  Receipt Date: 20050719
  Transmission Date: 20060218
  Serious: Yes (Hospitalization)
  Sender: FDA-Public Use
  Company Number: 2005AC01083

PATIENT
  Sex: Female

DRUGS (15)
  1. CRESTOR [Suspect]
     Route: 048
     Dates: end: 20050624
  2. BETAHISTINE [Concomitant]
  3. COZAAR [Concomitant]
     Dosage: (50 MG  HALF PER DAY)
  4. ETUMINE [Concomitant]
     Dates: end: 20050621
  5. LORMETAZEPAM [Concomitant]
  6. MERCK-METFORMINE [Concomitant]
  7. FOSAMAX [Concomitant]
  8. LYSANXIA [Concomitant]
     Dosage: HALF 10 MG, THREE TIMES DAILY
  9. MIXTARD HUMAN 70/30 [Concomitant]
     Dosage: 30/70 36E +38E
  10. ZYPREXA [Concomitant]
  11. ZANTAC [Concomitant]
  12. XANTHIUM [Concomitant]
     Dates: end: 20050625
  13. VENTOLIN [Concomitant]
  14. SYMBICORT [Concomitant]
  15. SEROXAT [Concomitant]

REACTIONS (4)
  - GENERAL PHYSICAL HEALTH DETERIORATION [None]
  - MALAISE [None]
  - MOBILITY DECREASED [None]
  - RHABDOMYOLYSIS [None]
